FAERS Safety Report 8994772 (Version 1)
Quarter: 2012Q4

REPORT INFORMATION
  Report Type: Spontaneous
  Country: US (occurrence: None)
  Receive Date: 20121228
  Receipt Date: 20121228
  Transmission Date: 20130627
  Serious: No
  Sender: FDA-Public Use
  Company Number: None

PATIENT
  Sex: Female
  Weight: 47.63 kg

DRUGS (2)
  1. DIPHENHYDRAMINE HCL [Suspect]
     Indication: ALLERGIC RHINITIS
     Dosage: 2 tablets twice/day oral
     Route: 048
     Dates: start: 20121129, end: 20121201
  2. DIPHENHYDRAMINE HCL [Suspect]
     Indication: ALLERGIC CONJUNCTIVITIS
     Dosage: 2 tablets twice/day oral
     Route: 048
     Dates: start: 20121129, end: 20121201

REACTIONS (2)
  - Migraine [None]
  - Wrong drug administered [None]
